FAERS Safety Report 6076384-8 (Version None)
Quarter: 2009Q1

REPORT INFORMATION
  Report Type: 
  Country: None (occurrence: None)
  Receive Date: 20090210
  Receipt Date: 20090202
  Transmission Date: 20090719
  Serious: Yes (Hospitalization)
  Sender: FDA-Public Use
  Company Number: 164993

PATIENT
  Age: 73 Year
  Sex: 0

DRUGS (8)
  1. CARBOPLATIN [Suspect]
     Dosage: 21 DAY CYCLE, INTRAVENOUS
     Route: 042
     Dates: start: 20070510
  2. PACLITAXEL [Suspect]
     Dosage: INTRAVENOUS
     Route: 042
     Dates: start: 20070510
  3. METOPROLOL SUCCINATE [Concomitant]
  4. LISINOPRIL [Concomitant]
  5. (INEGY) [Concomitant]
  6. AMLODIPINE [Concomitant]
  7. ONDANSETRON [Concomitant]
  8. (ESOMEPRAZOLE MAGNESIUM) [Concomitant]

REACTIONS (6)
  - ANAPHYLACTIC SHOCK [None]
  - DEHYDRATION [None]
  - NAUSEA [None]
  - RENAL FAILURE ACUTE [None]
  - SYNCOPE [None]
  - VOMITING [None]
